FAERS Safety Report 21850042 (Version 2)
Quarter: 2023Q1

REPORT INFORMATION
  Report Type: Spontaneous
  Country: GB (occurrence: GB)
  Receive Date: 20230111
  Receipt Date: 20230220
  Transmission Date: 20230417
  Serious: Yes (Death)
  Sender: FDA-Public Use
  Company Number: GB-MYLANLABS-2023M1002589

PATIENT
  Sex: Female

DRUGS (2)
  1. CLOZARIL [Suspect]
     Active Substance: CLOZAPINE
     Indication: Schizophrenia
     Dosage: 200 MILLIGRAM, QD
     Route: 048
     Dates: start: 20071203, end: 20230107
  2. FLUOXETINE [Concomitant]
     Active Substance: FLUOXETINE HYDROCHLORIDE
     Indication: Depressed mood
     Dosage: 20 MILLIGRAM, QD
     Route: 048
     Dates: start: 20071203, end: 20230107

REACTIONS (1)
  - Illness [Fatal]

NARRATIVE: CASE EVENT DATE: 20230107
